FAERS Safety Report 7649596-7 (Version None)
Quarter: 2011Q3

REPORT INFORMATION
  Report Type: 
  Country: None (occurrence: None)
  Receive Date: 20110727
  Receipt Date: 20110715
  Transmission Date: 20111222
  Serious: Yes (Other)
  Sender: FDA-Public Use
  Company Number: MC201100324

PATIENT
  Age: 71 Year
  Sex: Female
  Weight: 112 kg

DRUGS (4)
  1. PLAVIX [Concomitant]
  2. ANGIOMAX [Suspect]
     Indication: PERCUTANEOUS CORONARY INTERVENTION
     Dosage: 0.75 MG/KG, BOLUS, INTRAVENOUS
     Route: 040
     Dates: start: 20110620, end: 20110620
  3. ASPIRIN [Concomitant]
  4. ANGIOMAX [Suspect]
     Dosage: 1.75 MG/KG, HR, INTRAVENOUS
     Route: 042
     Dates: start: 20110620, end: 20110620

REACTIONS (3)
  - ATRIOVENTRICULAR BLOCK COMPLETE [None]
  - CORONARY ARTERY OCCLUSION [None]
  - CORONARY ARTERY THROMBOSIS [None]
